FAERS Safety Report 10516824 (Version 2)
Quarter: 2014Q4

REPORT INFORMATION
  Report Type: Spontaneous
  Country: US (occurrence: US)
  Receive Date: 20141014
  Receipt Date: 20141231
  Transmission Date: 20150528
  Serious: Yes (Hospitalization)
  Sender: FDA-Public Use
  Company Number: US-BAYER-2014-151369

PATIENT
  Age: 26 Year
  Sex: Female
  Weight: 58.96 kg

DRUGS (5)
  1. MIRENA [Suspect]
     Active Substance: LEVONORGESTREL
     Indication: CONTRACEPTION
     Dosage: 20 MCG/24HR, HS
     Route: 015
     Dates: start: 20111121, end: 20121026
  2. PRENATAL PLUS IRON [Concomitant]
     Active Substance: .ALPHA.-TOCOPHEROL ACETATE, DL-\.BETA.-CAROTENE\ASCORBIC ACID\CALCIUM CARBONATE\CHOLECALCIFEROL\CUPRIC OXIDE\CYANOCOBALAMIN\FERROUS FUMARATE\FOLIC ACID\NIACINAMIDE\PYRIDOXINE HYDROCHLORIDE\RIBOFLAVIN\THIAMINE MONONITRATE\VITAMIN A ACETATE\ZINC OXIDE
     Dosage: 90 1-50 MG DAILY
     Dates: start: 20110904
  3. XANAX [Concomitant]
     Active Substance: ALPRAZOLAM
     Dosage: 0.25 MG, PRN, EVERY 8 HOURS
     Dates: start: 20110904
  4. LORTAB [Concomitant]
     Active Substance: ACETAMINOPHEN\HYDROCODONE BITARTRATE
     Dosage: 5-500 MG EVERY 4 TO 6 HOURS
     Dates: start: 20110904
  5. ZOLOFT [Concomitant]
     Active Substance: SERTRALINE HYDROCHLORIDE
     Indication: DEPRESSION
     Dosage: 100 MG, 0.5 TABLET DAILY
     Dates: start: 20110904

REACTIONS (7)
  - Pain [None]
  - Uterine perforation [None]
  - Sexual dysfunction [None]
  - Injury [None]
  - Dyspareunia [None]
  - Ovarian cyst [None]
  - Emotional distress [None]
